FAERS Safety Report 8484398 (Version 3)
Quarter: 2014Q4

REPORT INFORMATION
  Report Type: Spontaneous
  Country: FR (occurrence: FR)
  Receive Date: 20120330
  Receipt Date: 20141229
  Transmission Date: 20150529
  Serious: Yes (Other)
  Sender: FDA-Public Use
  Company Number: FR-JNJFOC-20120309330

PATIENT

DRUGS (1)
  1. INFLIXIMAB, RECOMBINANT [Suspect]
     Active Substance: INFLIXIMAB
     Indication: PRODUCT USED FOR UNKNOWN INDICATION
     Route: 042

REACTIONS (8)
  - Malignant urinary tract neoplasm [Unknown]
  - Lung neoplasm malignant [Unknown]
  - Gastrointestinal carcinoma [Unknown]
  - Neoplasm malignant [Unknown]
  - Breast cancer [Unknown]
  - Skin cancer [Unknown]
  - Leukaemia [Unknown]
  - Lymphoma [Unknown]
